FAERS Safety Report 5143438-X (Version None)
Quarter: 2006Q4

REPORT INFORMATION
  Report Type: 
  Country: None (occurrence: None)
  Receive Date: 20061103
  Receipt Date: 20061027
  Transmission Date: 20070319
  Serious: Yes (Hospitalization, Disabling)
  Sender: FDA-Public Use
  Company Number: GB-MERCK-0610GBR00542

PATIENT
  Age: 54 Year
  Sex: Male

DRUGS (3)
  1. DECADRON [Suspect]
     Indication: LEUKAEMIA PLASMACYTIC
     Route: 048
  2. ADRIAMYCIN PFS [Suspect]
     Indication: LEUKAEMIA PLASMACYTIC
     Route: 065
  3. VELCADE [Suspect]
     Route: 065

REACTIONS (1)
  - PARAESTHESIA [None]
